FAERS Safety Report 4394227-5 (Version None)
Quarter: 2004Q3

REPORT INFORMATION
  Report Type: 
  Country: None (occurrence: None)
  Receive Date: 20040712
  Receipt Date: 20040702
  Transmission Date: 20050211
  Serious: Yes (Hospitalization)
  Sender: FDA-Public Use
  Company Number: PHBS2004JP08928

PATIENT
  Sex: Female

DRUGS (2)
  1. PARLODEL [Suspect]
     Indication: ACROMEGALY
     Dosage: 10 MG/DAY
     Route: 048
     Dates: end: 20040624
  2. SANDOSTATIN [Concomitant]
     Indication: ACROMEGALY
     Dosage: 100 UG, UNK
     Route: 058
     Dates: end: 20040624

REACTIONS (5)
  - HEADACHE [None]
  - MALAISE [None]
  - NEUROLEPTIC MALIGNANT SYNDROME [None]
  - PYREXIA [None]
  - VOMITING [None]
